FAERS Safety Report 17197889 (Version 1)
Quarter: 2019Q4

REPORT INFORMATION
  Report Type: Spontaneous
  Country: US (occurrence: US)
  Receive Date: 20191224
  Receipt Date: 20191224
  Transmission Date: 20200122
  Serious: No
  Sender: FDA-Public Use
  Company Number: US-AMGEN-USASP2019212656

PATIENT
  Age: 77 Year
  Sex: Female
  Weight: 52.61 kg

DRUGS (14)
  1. CIPROFLOXACIN. [Concomitant]
     Active Substance: CIPROFLOXACIN
     Dosage: 500 MILLIGRAM
  2. MELATONIN [Concomitant]
     Active Substance: MELATONIN
     Dosage: 5 MILLIGRAM
  3. ASPIRIN [ACETYLSALICYLIC ACID] [Concomitant]
     Active Substance: ASPIRIN
     Dosage: 81 MILLIGRAM
  4. VITAMIN D3 [Concomitant]
     Active Substance: CHOLECALCIFEROL
     Dosage: 2000 UNIT
  5. CARVEDILOL. [Concomitant]
     Active Substance: CARVEDILOL
     Dosage: 25 MILLIGRAM
  6. VITAMIN D [COLECALCIFEROL] [Concomitant]
     Active Substance: CHOLECALCIFEROL
     Dosage: UNK UNK, QD
  7. PROCRIT [Suspect]
     Active Substance: ERYTHROPOIETIN
     Indication: ANAEMIA
     Dosage: UNK (40000 U/ML)
     Route: 065
     Dates: start: 20190401
  8. AURYXIA [Concomitant]
     Active Substance: TETRAFERRIC TRICITRATE DECAHYDRATE
     Dosage: 210 MILLIGRAM
  9. FERREX [Concomitant]
     Active Substance: FERRIC POLYSACCHARIDE COMPLEX
     Dosage: 150 MILLIGRAM
  10. RAPAMUNE [Concomitant]
     Active Substance: SIROLIMUS
     Dosage: 1 MILLIGRAM
  11. HYDRALAZINE [Concomitant]
     Active Substance: HYDRALAZINE HYDROCHLORIDE
     Dosage: 50 MILLIGRAM
  12. AMLODIPINE [Concomitant]
     Active Substance: AMLODIPINE BESYLATE
     Dosage: 10 MILLIGRAM
  13. CALCITROL [CALCITRIOL] [Concomitant]
     Active Substance: CALCITRIOL
     Dosage: 0.5 MICROGRAM
  14. VALTREX [Concomitant]
     Active Substance: VALACYCLOVIR HYDROCHLORIDE
     Dosage: 500 MILLIGRAM

REACTIONS (1)
  - Product storage error [Unknown]

NARRATIVE: CASE EVENT DATE: 20191204
